FAERS Safety Report 9276947 (Version 1)
Quarter: 2013Q2

REPORT INFORMATION
  Report Type: Spontaneous
  Country: GB (occurrence: GB)
  Receive Date: 20130507
  Receipt Date: 20130507
  Transmission Date: 20140414
  Serious: Yes (Other)
  Sender: FDA-Public Use
  Company Number: GB-B.I. PHARMACEUTICALS,INC./RIDGEFIELD-2013-UK-00957UK

PATIENT
  Sex: Female

DRUGS (1)
  1. TRAJENTA [Suspect]

REACTIONS (1)
  - Liver function test abnormal [Unknown]
